FAERS Safety Report 11930031 (Version 1)
Quarter: 2016Q1

REPORT INFORMATION
  Report Type: Spontaneous
  Country: US (occurrence: US)
  Receive Date: 20160120
  Receipt Date: 20160120
  Transmission Date: 20160526
  Serious: No
  Sender: FDA-Public Use
  Company Number: US-MYLANLABS-2014M1014127

PATIENT
  Age: 61 Year
  Sex: Female

DRUGS (1)
  1. CETIRIZINE HCL TABLETS [Suspect]
     Active Substance: CETIRIZINE HYDROCHLORIDE
     Indication: MULTIPLE ALLERGIES
     Dosage: 10 MG, QD
     Route: 048
     Dates: start: 2012

REACTIONS (1)
  - False positive investigation result [Not Recovered/Not Resolved]

NARRATIVE: CASE EVENT DATE: 20141208
